FAERS Safety Report 15269765 (Version 1)
Quarter: 2018Q3

REPORT INFORMATION
  Report Type: Spontaneous
  Country: US (occurrence: US)
  Receive Date: 20180813
  Receipt Date: 20180813
  Transmission Date: 20181010
  Serious: Yes (Other)
  Sender: FDA-Public Use
  Company Number: US-STRIDES ARCOLAB LIMITED-2017SP015084

PATIENT

DRUGS (7)
  1. TACROLIMUS. [Interacting]
     Active Substance: TACROLIMUS
     Dosage: DOSE DECREASED
     Route: 065
  2. VORICONAZOLE. [Interacting]
     Active Substance: VORICONAZOLE
     Indication: HISTOPLASMOSIS
     Dosage: UNKNOWN
     Route: 065
  3. ANTITHYMOCYTE IMMUNOGLOBULIN [Concomitant]
     Active Substance: THYMOCYTE IMMUNE GLOBULIN NOS
     Indication: TRANSPLANT REJECTION
     Dosage: UNK
     Route: 065
  4. PREDNISONE. [Concomitant]
     Active Substance: PREDNISONE
     Indication: RENAL TRANSPLANT
     Dosage: UNKNOWN
     Route: 065
  5. TACROLIMUS. [Suspect]
     Active Substance: TACROLIMUS
     Indication: RENAL TRANSPLANT
     Dosage: UNKNOWN
     Route: 065
  6. ALEMTUZUMAB [Concomitant]
     Active Substance: ALEMTUZUMAB
     Indication: RENAL TRANSPLANT
     Dosage: UNK
     Route: 065
  7. MYCOPHENOLATE MOFETIL. [Concomitant]
     Active Substance: MYCOPHENOLATE MOFETIL
     Indication: RENAL TRANSPLANT
     Dosage: UNKNOWN
     Route: 065

REACTIONS (2)
  - Hyperkalaemia [Recovered/Resolved]
  - Drug interaction [Unknown]
